FAERS Safety Report 5253512-5 (Version None)
Quarter: 2007Q1

REPORT INFORMATION
  Report Type: 
  Country: None (occurrence: None)
  Receive Date: 20070226
  Receipt Date: 20070216
  Transmission Date: 20070707
  Serious: Yes (Other)
  Sender: FDA-Public Use
  Company Number: 2007307701

PATIENT
  Sex: Female

DRUGS (11)
  1. BENADRYL [Suspect]
     Dates: start: 19960101, end: 19960101
  2. NORVASC [Concomitant]
  3. ATENOLOL [Concomitant]
  4. ENALAPRIL MALEATE [Concomitant]
  5. PLAVIX [Concomitant]
  6. DYAZIDE [Concomitant]
  7. ALBUTEROL SULFATE [Concomitant]
  8. PREVACID [Concomitant]
  9. OXYCODONE AND ACETAMINOPHEN [Concomitant]
  10. FIORICET [Concomitant]
  11. ALBUTEROL [Concomitant]

REACTIONS (2)
  - CARDIAC ARREST [None]
  - HYPERSENSITIVITY [None]
